FAERS Safety Report 12968566 (Version 1)
Quarter: 2016Q4

REPORT INFORMATION
  Report Type: Spontaneous
  Country: US (occurrence: US)
  Receive Date: 20161120
  Receipt Date: 20161120
  Transmission Date: 20170207
  Serious: No
  Sender: FDA-Public Use
  Company Number: None

PATIENT
  Age: 52 Year
  Sex: Male

DRUGS (1)
  1. ENTECAVIR 0.5MG AUROBINDO PHARMA [Suspect]
     Active Substance: ENTECAVIR
     Indication: CHRONIC HEPATITIS B
     Route: 048
     Dates: start: 20160924

REACTIONS (5)
  - Balance disorder [None]
  - Diarrhoea [None]
  - Renal failure [None]
  - Pain in extremity [None]
  - Decreased appetite [None]

NARRATIVE: CASE EVENT DATE: 20161101
